FAERS Safety Report 8539531-1 (Version None)
Quarter: 2012Q3

REPORT INFORMATION
  Report Type: 
  Country: None (occurrence: None)
  Receive Date: 20120726
  Receipt Date: 20120720
  Transmission Date: 20120928
  Serious: Yes (Hospitalization, Other)
  Sender: FDA-Public Use
  Company Number: US-BAYER-2012-022233

PATIENT
  Age: 20 Year
  Sex: Female
  Weight: 99.773 kg

DRUGS (8)
  1. PERCOCET [Concomitant]
  2. YASMIN [Suspect]
     Indication: ACNE
     Dosage: UNK
     Route: 048
     Dates: start: 20070401, end: 20080401
  3. COLACE [Concomitant]
  4. YASMIN [Suspect]
     Indication: CONTRACEPTION
  5. ZANTAC [Concomitant]
     Indication: GASTROOESOPHAGEAL REFLUX DISEASE
     Dosage: UNK
     Dates: start: 20080101, end: 20090101
  6. YASMIN [Suspect]
     Indication: PREMENSTRUAL SYNDROME
     Dosage: UNK
     Dates: start: 20070928
  7. CLARITIN [Concomitant]
  8. RANITIDINE [Concomitant]

REACTIONS (7)
  - FEAR [None]
  - GALLBLADDER PAIN [None]
  - INJURY [None]
  - GENERALISED ANXIETY DISORDER [None]
  - CHOLECYSTITIS ACUTE [None]
  - PAIN [None]
  - MAJOR DEPRESSION [None]
